FAERS Safety Report 9472128 (Version 1)
Quarter: 2013Q3

REPORT INFORMATION
  Report Type: Spontaneous
  Country: GB (occurrence: GB)
  Receive Date: 20130823
  Receipt Date: 20130823
  Transmission Date: 20140515
  Serious: Yes (Disabling)
  Sender: FDA-Public Use
  Company Number: GB-009507513-1308GBR009911

PATIENT
  Age: 30 Year
  Sex: Female
  Weight: 59 kg

DRUGS (2)
  1. NITRO-DUR [Suspect]
     Dosage: UNK
     Route: 061
     Dates: end: 201304
  2. MIRENA [Concomitant]
     Dosage: UNK
     Route: 015
     Dates: start: 20130314, end: 20130315

REACTIONS (3)
  - Panic reaction [Recovered/Resolved]
  - Restlessness [Recovered/Resolved]
  - Irritability [Recovered/Resolved]
